FAERS Safety Report 20911833 (Version 1)
Quarter: 2022Q2

REPORT INFORMATION
  Report Type: Report from Study
  Country: DE (occurrence: DE)
  Receive Date: 20220603
  Receipt Date: 20220603
  Transmission Date: 20220720
  Serious: Yes (Hospitalization)
  Sender: FDA-Public Use
  Company Number: DE-SUN PHARMACEUTICAL INDUSTRIES LTD-2022RR-339623

PATIENT
  Age: 42 Year
  Sex: Male
  Weight: 152 kg

DRUGS (2)
  1. TILDRAKIZUMAB [Suspect]
     Active Substance: TILDRAKIZUMAB
     Indication: Psoriasis
     Dosage: 2X100 MILLIGRAM
     Route: 058
     Dates: start: 20200423, end: 20220405
  2. DOLODORMIN [Concomitant]
     Indication: Product used for unknown indication
     Dosage: UNK
     Route: 065

REACTIONS (1)
  - Relapsing-remitting multiple sclerosis [Recovered/Resolved]

NARRATIVE: CASE EVENT DATE: 20220211
